FAERS Safety Report 10012852 (Version 1)
Quarter: 2014Q1

REPORT INFORMATION
  Report Type: Spontaneous
  Country: AU (occurrence: AU)
  Receive Date: 20140314
  Receipt Date: 20140314
  Transmission Date: 20141002
  Serious: Yes (Hospitalization, Other)
  Sender: FDA-Public Use
  Company Number: AU-PFIZER INC-2014073604

PATIENT
  Sex: Female

DRUGS (1)
  1. ZELDOX [Suspect]
     Dosage: UNK
     Dates: start: 2013, end: 201304

REACTIONS (3)
  - Neuroleptic malignant syndrome [Unknown]
  - Confusional state [Unknown]
  - Cognitive disorder [Not Recovered/Not Resolved]
